FAERS Safety Report 9548565 (Version 2)
Quarter: 2013Q4

REPORT INFORMATION
  Report Type: Spontaneous
  Country: US (occurrence: US)
  Receive Date: 20130924
  Receipt Date: 20131023
  Transmission Date: 20140711
  Serious: No
  Sender: FDA-Public Use
  Company Number: US-PFIZER INC-2013269947

PATIENT
  Age: 47 Year
  Sex: Male
  Weight: 80 kg

DRUGS (15)
  1. XALKORI [Suspect]
     Indication: NON-SMALL CELL LUNG CANCER
     Dosage: 250 MG, 2X/DAY
     Route: 048
     Dates: start: 20130510, end: 20130513
  2. XALKORI [Suspect]
     Dosage: 250 MG, 1X/DAY (DAILY)
     Route: 048
     Dates: start: 20130520, end: 20130808
  3. XALKORI [Suspect]
     Dosage: 200 MG, 2X/DAY
     Route: 048
     Dates: start: 20130808, end: 20130911
  4. IBUPROFEN [Concomitant]
     Indication: PAIN
     Dosage: 400 MG, AS NEEDED
     Dates: start: 20130506
  5. IBUPROFEN [Concomitant]
     Dosage: 800 MG, 2X/DAY
     Dates: start: 20130829
  6. LACTULOSE [Concomitant]
     Indication: CONSTIPATION
     Dosage: 10 G IN 15 ML, 3X/DAY, AS NEEDED
     Route: 048
  7. LORAZEPAM [Concomitant]
     Indication: ANXIETY
     Dosage: 1 MG, 4X/DAY, PRN
     Route: 048
     Dates: start: 20130702
  8. LORAZEPAM [Concomitant]
     Indication: SLEEP DISORDER
  9. LORAZEPAM [Concomitant]
     Indication: NAUSEA
  10. METOCLOPRAMIDE [Concomitant]
     Indication: NAUSEA
     Dosage: 10 MG, 3X/DAY, ONE HOUR BEFORE MEALS
     Route: 048
     Dates: start: 20130603
  11. ONDANSETRON [Concomitant]
     Indication: NAUSEA
     Dosage: 8 MG, EVERY 6 HRS, AS NEEDED
     Dates: start: 20130515, end: 20130801
  12. OXYCODONE [Concomitant]
     Indication: CANCER PAIN
     Dosage: 5 MG, EVERY 2 HRS, AS NEEDED
     Route: 048
     Dates: start: 20130603
  13. OXYCONTIN [Concomitant]
     Indication: CANCER PAIN
     Dosage: 20 MG, 3X/DAY
     Dates: start: 20130613
  14. TRAZODONE [Concomitant]
     Dosage: 100 MG, 1X/DAY
     Route: 048
     Dates: start: 20130506
  15. TYLENOL [Concomitant]
     Indication: PAIN
     Dosage: 325 MG (1 TO 2 TABS), AS NEEDED
     Dates: start: 20130506

REACTIONS (16)
  - Nausea [Recovered/Resolved]
  - Myalgia [Recovered/Resolved]
  - Diarrhoea [Recovered/Resolved]
  - Headache [Unknown]
  - Insomnia [Unknown]
  - Arthralgia [Unknown]
  - Tremor [Unknown]
  - Fatigue [Unknown]
  - Cough [Unknown]
  - Decreased appetite [Unknown]
  - Visual impairment [Unknown]
  - Hot flush [Unknown]
  - Vomiting [Unknown]
  - Abdominal pain [Unknown]
  - Pleuritic pain [Unknown]
  - Myalgia [Recovered/Resolved]
